FAERS Safety Report 4777002-9 (Version None)
Quarter: 2005Q3

REPORT INFORMATION
  Report Type: 
  Country: None (occurrence: None)
  Receive Date: 20050923
  Receipt Date: 20050824
  Transmission Date: 20060218
  Serious: Yes (Other)
  Sender: FDA-Public Use
  Company Number: US-GLAXOSMITHKLINE-A0575491A

PATIENT
  Age: 82 Year
  Sex: Male
  Weight: 102.3 kg

DRUGS (12)
  1. AVANDIA [Suspect]
     Dates: start: 20000901, end: 20041001
  2. GLYBURIDE [Concomitant]
     Dosage: 1.25MG PER DAY
     Route: 048
  3. IRBESARTAN [Concomitant]
     Dosage: 300MG PER DAY
     Route: 048
  4. GEMFIBROZIL [Concomitant]
     Dosage: 600MG PER DAY
     Route: 048
  5. PREDNISONE [Concomitant]
     Indication: DRUG USE FOR UNKNOWN INDICATION
  6. COMBIVENT [Concomitant]
     Dosage: 2PUFF THREE TIMES PER DAY
     Route: 055
  7. ISOSORBIDE MONONITRATE [Concomitant]
     Route: 048
  8. LOVASTATIN [Concomitant]
     Dosage: 20MG PER DAY
  9. ATENOLOL [Concomitant]
     Dosage: 50MG PER DAY
  10. FUROSEMIDE [Concomitant]
     Dosage: 120MG PER DAY
     Route: 048
  11. METOLAZONE [Concomitant]
     Dosage: 5MG PER DAY
     Route: 048
  12. ENALAPRIL [Concomitant]
     Dates: end: 20040101

REACTIONS (7)
  - DYSPNOEA [None]
  - GENERALISED OEDEMA [None]
  - HYPOXIA [None]
  - LABORATORY TEST ABNORMAL [None]
  - OEDEMA PERIPHERAL [None]
  - PLEURAL EFFUSION [None]
  - RENAL FAILURE [None]
